FAERS Safety Report 12757531 (Version 1)
Quarter: 2016Q3

REPORT INFORMATION
  Report Type: Report from Study
  Country: US (occurrence: US)
  Receive Date: 20160919
  Receipt Date: 20160919
  Transmission Date: 20161109
  Serious: Yes (Other)
  Sender: FDA-Public Use
  Company Number: US-AMGEN-USASL2016110969

PATIENT
  Age: 68 Year
  Sex: Male
  Weight: 68.27 kg

DRUGS (2)
  1. KYPROLIS [Suspect]
     Active Substance: CARFILZOMIB
     Indication: PLASMA CELL MYELOMA
     Dosage: 37 MG, ON DAY 1, 2, 8, 9 , 15 AND 16
     Route: 042
     Dates: start: 20160701
  2. REVLIMID [Concomitant]
     Active Substance: LENALIDOMIDE
     Indication: PLASMA CELL MYELOMA
     Dosage: 25 MG, UNK
     Dates: start: 20151211

REACTIONS (6)
  - Pain [Recovered/Resolved]
  - Night sweats [Recovered/Resolved]
  - Gait disturbance [Unknown]
  - Pyrexia [Recovered/Resolved]
  - Plasma cell myeloma [Not Recovered/Not Resolved]
  - Tremor [Unknown]

NARRATIVE: CASE EVENT DATE: 20160704
